FAERS Safety Report 7905046-4 (Version None)
Quarter: 2011Q4

REPORT INFORMATION
  Report Type: 
  Country: None (occurrence: None)
  Receive Date: 20111109
  Receipt Date: 20111108
  Transmission Date: 20120403
  Serious: Yes (Hospitalization)
  Sender: FDA-Public Use
  Company Number: PHHY2011NL89488

PATIENT
  Sex: Male

DRUGS (8)
  1. ZOMETA [Suspect]
     Dosage: 4 MG/ 5 ML
     Dates: start: 20110913
  2. ZOMETA [Suspect]
     Dosage: 4 MG/ 5 ML
     Dates: start: 20111010
  3. PREDNISONE [Concomitant]
     Dosage: 1DD 10MG
  4. OXYCONTIN [Concomitant]
     Dosage: 1DD10MG
  5. ZOMETA [Suspect]
     Indication: PROSTATE CANCER METASTATIC
     Dosage: 4 MG/ 5 ML
     Dates: start: 20101019
  6. AMITRIPTYLINE HCL [Concomitant]
     Dosage: 1DD 10MG
  7. ELIGARD [Concomitant]
  8. RANITIDINE [Concomitant]
     Dosage: 2DD 150MG

REACTIONS (1)
  - ARRHYTHMIA [None]
